FAERS Safety Report 9939141 (Version 2)
Quarter: 2014Q1

REPORT INFORMATION
  Report Type: Spontaneous
  Country: PL (occurrence: PL)
  Receive Date: 20140303
  Receipt Date: 20140311
  Transmission Date: 20141002
  Serious: Yes (Hospitalization)
  Sender: FDA-Public Use
  Company Number: PL-ASTELLAS-2014EU001772

PATIENT
  Age: 55 Year
  Sex: Male

DRUGS (6)
  1. PROGRAF [Suspect]
     Indication: IMMUNOSUPPRESSION
     Dosage: 8 MG, UNKNOWN/D
     Route: 065
  2. PROGRAF [Suspect]
     Dosage: 6 MG, UNKNOWN/D
     Route: 065
  3. HYDROCORTISONE [Suspect]
     Indication: IMMUNOSUPPRESSION
     Dosage: 200 MG, UNKNOWN/D
     Route: 065
  4. HYDROCORTISONE [Suspect]
     Dosage: 100 MG, UNKNOWN/D
     Route: 065
  5. IMIPENEM [Concomitant]
     Dosage: 500 MG, TID
     Route: 042
  6. CIPROFLOXACIN [Concomitant]
     Dosage: 500 MG, BID
     Route: 048

REACTIONS (4)
  - Clostridium difficile colitis [Recovered/Resolved]
  - Protein-losing gastroenteropathy [Recovered/Resolved]
  - Ascites [Recovered/Resolved]
  - Oedema peripheral [Recovered/Resolved]
